FAERS Safety Report 7549849-7 (Version None)
Quarter: 2011Q2

REPORT INFORMATION
  Report Type: 
  Country: None (occurrence: None)
  Receive Date: 20110615
  Receipt Date: 20110606
  Transmission Date: 20111010
  Serious: Yes (Hospitalization)
  Sender: FDA-Public Use
  Company Number: FR-ASTRAZENECA-2011SE35437

PATIENT
  Age: 30245 Day
  Sex: Female

DRUGS (15)
  1. NEXIUM [Suspect]
     Indication: GASTRITIS
     Route: 048
     Dates: start: 20110330, end: 20110426
  2. PRAZOSIN HCL [Concomitant]
  3. AMLODIPINE [Concomitant]
  4. CACIT D3 [Concomitant]
  5. NEURONTIN [Concomitant]
  6. FOLIC ACID [Concomitant]
  7. CALCUIM SORBISTERIT [Concomitant]
  8. HYPERIUM [Concomitant]
  9. ASPIRIN [Concomitant]
  10. FUROSEMIDE [Concomitant]
  11. LERCANIDIPINE [Concomitant]
  12. CRESTOR [Concomitant]
     Route: 048
  13. TERNORMINE [Concomitant]
  14. ESCITALOPRAM [Concomitant]
  15. ALLOPURINOL [Concomitant]

REACTIONS (1)
  - TOXIC SKIN ERUPTION [None]
